FAERS Safety Report 7472730-9 (Version None)
Quarter: 2011Q2

REPORT INFORMATION
  Report Type: 
  Country: None (occurrence: None)
  Receive Date: 20110511
  Receipt Date: 20110506
  Transmission Date: 20111010
  Serious: Yes (Other)
  Sender: FDA-Public Use
  Company Number: US-PFIZER INC-2011098348

PATIENT
  Sex: Female
  Weight: 63.492 kg

DRUGS (5)
  1. ZOLOFT [Suspect]
     Indication: DEPRESSION
     Dosage: UNK, DAILY
     Dates: start: 20080101, end: 20080101
  2. ZOLOFT [Suspect]
     Indication: DEPRESSED MOOD
  3. ZOLOFT [Suspect]
  4. EFFEXOR XR [Suspect]
     Indication: OBSESSIVE-COMPULSIVE DISORDER
     Dosage: 170 MG, DAILY
     Route: 048
     Dates: start: 20050101
  5. ZOLOFT [Suspect]
     Indication: ACTIVITIES OF DAILY LIVING IMPAIRED

REACTIONS (1)
  - DISORIENTATION [None]
